FAERS Safety Report 20382985 (Version 1)
Quarter: 2022Q1

REPORT INFORMATION
  Report Type: Spontaneous
  Country: US (occurrence: None)
  Receive Date: 20220126
  Receipt Date: 20220126
  Transmission Date: 20220423
  Serious: No
  Sender: FDA-Public Use
  Company Number: None

PATIENT

DRUGS (3)
  1. REGEN-COV [Suspect]
     Active Substance: CASIRIVIMAB\IMDEVIMAB
     Route: 042
  2. CASIRIVIMAB\IMDEVIMAB [Suspect]
     Active Substance: CASIRIVIMAB\IMDEVIMAB
     Route: 042
  3. REGEN-COV [Suspect]
     Active Substance: CASIRIVIMAB\IMDEVIMAB
     Dosage: OTHER STRENGTH : 600MG/600MGPER10ML;?

REACTIONS (8)
  - Product packaging confusion [None]
  - Product packaging confusion [None]
  - Product label issue [None]
  - Product packaging issue [None]
  - Product label confusion [None]
  - Circumstance or information capable of leading to medication error [None]
  - Product preparation error [None]
  - Incorrect dose administered [None]
